FAERS Safety Report 12591599 (Version 4)
Quarter: 2017Q2

REPORT INFORMATION
  Report Type: Report from Study
  Country: BR (occurrence: BR)
  Receive Date: 20160726
  Receipt Date: 20170411
  Transmission Date: 20170830
  Serious: Yes (Other)
  Sender: FDA-Public Use
  Company Number: BR-JNJFOC-20160719554

PATIENT
  Sex: Female

DRUGS (5)
  1. STELARA [Suspect]
     Active Substance: USTEKINUMAB
     Indication: PSORIASIS
     Route: 058
     Dates: start: 20160908
  2. STELARA [Suspect]
     Active Substance: USTEKINUMAB
     Indication: PSORIASIS
     Route: 058
     Dates: start: 20150724, end: 201603
  3. INSULIN [Concomitant]
     Active Substance: INSULIN NOS
     Route: 065
  4. METFORMIN [Concomitant]
     Active Substance: METFORMIN HYDROCHLORIDE
     Route: 065
  5. STELARA [Suspect]
     Active Substance: USTEKINUMAB
     Indication: PSORIASIS
     Route: 058
     Dates: start: 20170320

REACTIONS (5)
  - Urinary tract infection [Unknown]
  - Psoriasis [Recovering/Resolving]
  - Hepatic steatosis [Unknown]
  - Diabetes mellitus [Recovering/Resolving]
  - Tooth infection [Unknown]

NARRATIVE: CASE EVENT DATE: 2017
